FAERS Safety Report 10687939 (Version 2)
Quarter: 2015Q1

REPORT INFORMATION
  Report Type: Spontaneous
  Country: FR (occurrence: FR)
  Receive Date: 20150102
  Receipt Date: 20150115
  Transmission Date: 20150720
  Serious: Yes (Other)
  Sender: FDA-Public Use
  Company Number: FR-BRISTOL-MYERS SQUIBB COMPANY-BMS-2014-003249

PATIENT
  Age: 50 Year
  Sex: Male

DRUGS (3)
  1. NORVIR [Suspect]
     Active Substance: RITONAVIR
     Indication: ANTIRETROVIRAL THERAPY
     Dosage: UNK
     Route: 065
     Dates: start: 20041129, end: 20141106
  2. REYATAZ [Suspect]
     Active Substance: ATAZANAVIR SULFATE
     Indication: ANTIRETROVIRAL THERAPY
     Dosage: UNK
     Route: 065
     Dates: start: 20041129, end: 20141106
  3. TRUVADA [Suspect]
     Active Substance: EMTRICITABINE\TENOFOVIR DISOPROXIL FUMARATE
     Indication: ANTIRETROVIRAL THERAPY
     Dosage: UNK
     Route: 065
     Dates: start: 2006, end: 20141106

REACTIONS (1)
  - Renal colic [Recovered/Resolved with Sequelae]

NARRATIVE: CASE EVENT DATE: 201410
